FAERS Safety Report 8402341-X (Version None)
Quarter: 2012Q2

REPORT INFORMATION
  Report Type: 
  Country: None (occurrence: None)
  Receive Date: 20120601
  Receipt Date: 20120523
  Transmission Date: 20120825
  Serious: Yes (Hospitalization)
  Sender: FDA-Public Use
  Company Number: GB-SANOFI-AVENTIS-2012SA038343

PATIENT
  Age: 79 Year
  Sex: Male
  Weight: 95 kg

DRUGS (3)
  1. LEUPROLIDE ACETATE [Suspect]
     Indication: PROSTATE CANCER
     Route: 058
     Dates: start: 20070504
  2. IPRATROPIUM BROMIDE/SALBUTAMOL SULFATE [Concomitant]
     Dates: start: 20061227
  3. FLUTICASONE PROPIONATE/SALMETEROL [Concomitant]
     Dates: start: 20061227

REACTIONS (3)
  - CIRCULATORY COLLAPSE [None]
  - GASTRITIS [None]
  - HAEMATEMESIS [None]
